FAERS Safety Report 20425952 (Version 2)
Quarter: 2023Q4

REPORT INFORMATION
  Report Type: Report from Study
  Country: US (occurrence: US)
  Receive Date: 20220204
  Receipt Date: 20231211
  Transmission Date: 20240109
  Serious: No
  Sender: FDA-Public Use
  Company Number: US-ACADIA PHARMACEUTICALS INC.-ACA-2022-PIM-000128

PATIENT
  Age: 87 Year
  Sex: Male

DRUGS (13)
  1. NUPLAZID [Suspect]
     Active Substance: PIMAVANSERIN TARTRATE
     Indication: Parkinson^s disease
     Dosage: 34 MILLIGRAM, QD
     Route: 048
     Dates: start: 202111
  2. SINEMET [Concomitant]
     Active Substance: CARBIDOPA\LEVODOPA
  3. EXELON [Concomitant]
     Active Substance: RIVASTIGMINE TARTRATE
  4. TAMSULOSIN [Concomitant]
     Active Substance: TAMSULOSIN
  5. NAMENDA [Concomitant]
     Active Substance: MEMANTINE HYDROCHLORIDE
  6. CELECOXIB [Concomitant]
     Active Substance: CELECOXIB
  7. IBUPROFEN [Concomitant]
     Active Substance: IBUPROFEN
  8. QUETIAPINE FUMARATE [Concomitant]
     Active Substance: QUETIAPINE FUMARATE
  9. MINERALS\VITAMINS [Concomitant]
     Active Substance: MINERALS\VITAMINS
  10. POTASSIUM CHLORIDE [Concomitant]
     Active Substance: POTASSIUM CHLORIDE
  11. LISINOPRIL [Concomitant]
     Active Substance: LISINOPRIL
  12. VICKS DAYQUIL [Concomitant]
     Active Substance: DEXTROMETHORPHAN HYDROBROMIDE\GUAIFENESIN
  13. ARICEPT [Concomitant]
     Active Substance: DONEPEZIL HYDROCHLORIDE

REACTIONS (5)
  - Swelling face [Unknown]
  - Rapid eye movement sleep behaviour disorder [Unknown]
  - Weight increased [Unknown]
  - Insomnia [Recovered/Resolved]
  - Hallucination [Recovered/Resolved]

NARRATIVE: CASE EVENT DATE: 20231112
